FAERS Safety Report 16632858 (Version 2)
Quarter: 2019Q3

REPORT INFORMATION
  Report Type: Report from Study
  Country: US (occurrence: US)
  Receive Date: 20190725
  Receipt Date: 20190816
  Transmission Date: 20191004
  Serious: Yes (Other)
  Sender: FDA-Public Use
  Company Number: US-JNJFOC-20190725473

PATIENT
  Age: 84 Year
  Sex: Female

DRUGS (2)
  1. IMBRUVICA [Suspect]
     Active Substance: IBRUTINIB
     Route: 048
     Dates: start: 201807
  2. IMBRUVICA [Suspect]
     Active Substance: IBRUTINIB
     Indication: CHRONIC LYMPHOCYTIC LEUKAEMIA
     Dosage: 140 MG, QD
     Route: 048
     Dates: start: 20180720

REACTIONS (5)
  - Incorrect dose administered [Unknown]
  - Pulmonary mass [Unknown]
  - Inappropriate schedule of product administration [Unknown]
  - Haemoptysis [Unknown]
  - Off label use [Unknown]

NARRATIVE: CASE EVENT DATE: 201807
